FAERS Safety Report 8012925-9 (Version None)
Quarter: 2011Q4

REPORT INFORMATION
  Report Type: 
  Country: None (occurrence: None)
  Receive Date: 20111229
  Receipt Date: 20111221
  Transmission Date: 20120403
  Serious: Yes (Other)
  Sender: FDA-Public Use
  Company Number: JP-ASTELLAS-2011JP009564

PATIENT
  Age: 72 Year
  Sex: Female

DRUGS (4)
  1. VESICARE [Suspect]
     Dosage: 1 DF, UID/QD
     Route: 048
     Dates: start: 20090501, end: 20091101
  2. VESICARE [Suspect]
     Dosage: 2.5 MG, BID
     Route: 048
     Dates: start: 20091201
  3. VESICARE [Suspect]
     Dosage: 2.5 MG, BID
     Route: 048
  4. VESICARE [Suspect]
     Dosage: 5 MG, UID/QD
     Route: 048
     Dates: start: 20091101, end: 20091201

REACTIONS (1)
  - PERSECUTORY DELUSION [None]
